FAERS Safety Report 22036092 (Version 1)
Quarter: 2023Q1

REPORT INFORMATION
  Report Type: Spontaneous
  Country: TR (occurrence: TR)
  Receive Date: 20230224
  Receipt Date: 20230224
  Transmission Date: 20230417
  Serious: Yes (Hospitalization, Other)
  Sender: FDA-Public Use
  Company Number: TR-MYLANLABS-2011S1004301

PATIENT
  Age: 74 Year
  Sex: Female

DRUGS (2)
  1. DICLOFENAC POTASSIUM [Suspect]
     Active Substance: DICLOFENAC POTASSIUM
     Indication: Upper respiratory tract infection
     Dosage: UNK
     Route: 048
  2. DICLOFENAC POTASSIUM [Suspect]
     Active Substance: DICLOFENAC POTASSIUM
     Dosage: UNK
     Route: 042

REACTIONS (1)
  - Kounis syndrome [Recovering/Resolving]
